FAERS Safety Report 23116158 (Version 3)
Quarter: 2024Q2

REPORT INFORMATION
  Report Type: Report from Study
  Country: US (occurrence: US)
  Receive Date: 20231027
  Receipt Date: 20240415
  Transmission Date: 20240716
  Serious: Yes (Death, Hospitalization)
  Sender: FDA-Public Use
  Company Number: US-Eisai-EC-2023-151114

PATIENT
  Sex: Male
  Weight: 73.8 kg

DRUGS (3)
  1. LENVATINIB [Suspect]
     Active Substance: LENVATINIB
     Indication: Neuroendocrine carcinoma of prostate
     Route: 048
     Dates: start: 20230831, end: 20230919
  2. PEMBROLIZUMAB [Suspect]
     Active Substance: PEMBROLIZUMAB
     Indication: Neuroendocrine carcinoma of prostate
     Dosage: Q21D
     Route: 042
     Dates: start: 20230831, end: 20230831
  3. BUDESONIDE [Concomitant]
     Active Substance: BUDESONIDE
     Dates: start: 20210219, end: 20230907

REACTIONS (3)
  - Muscular weakness [Fatal]
  - Failure to thrive [Fatal]
  - Diarrhoea [Recovered/Resolved]

NARRATIVE: CASE EVENT DATE: 20230918
